FAERS Safety Report 5342813-8 (Version None)
Quarter: 2007Q2

REPORT INFORMATION
  Report Type: 
  Country: None (occurrence: None)
  Receive Date: 20070601
  Receipt Date: 20070523
  Transmission Date: 20071010
  Serious: Yes (Life-Threatening, Hospitalization)
  Sender: FDA-Public Use
  Company Number: US-MERCK-0705USA04374

PATIENT
  Sex: Female

DRUGS (4)
  1. EMEND [Suspect]
     Indication: PROPHYLAXIS
     Route: 048
     Dates: start: 20060701
  2. GEMZAR [Concomitant]
     Route: 065
  3. ALOXI [Concomitant]
     Route: 065
  4. TAXOTERE [Suspect]
     Route: 065

REACTIONS (5)
  - DRUG TOXICITY [None]
  - EMBOLISM [None]
  - NAUSEA [None]
  - TRANSIENT ISCHAEMIC ATTACK [None]
  - VOMITING [None]
